FAERS Safety Report 8056606 (Version 3)
Quarter: 2014Q1

REPORT INFORMATION
  Report Type: Report from Study
  Country: JP (occurrence: JP)
  Receive Date: 20110727
  Receipt Date: 20140314
  Transmission Date: 20141002
  Serious: Yes (Death, Hospitalization, Other)
  Sender: FDA-Public Use
  Company Number: JP-ROCHE-790081

PATIENT
  Age: 72 Year
  Sex: Male
  Weight: 52.8 kg

DRUGS (26)
  1. TOCILIZUMAB [Suspect]
     Indication: PRODUCT USED FOR UNKNOWN INDICATION
     Route: 065
     Dates: start: 20100120, end: 20100901
  2. INFLIXIMAB [Suspect]
     Indication: PRODUCT USED FOR UNKNOWN INDICATION
     Route: 065
  3. INFLIXIMAB [Suspect]
     Dosage: 6TH ADMINISTRATION
     Route: 065
  4. INFLIXIMAB [Suspect]
     Dosage: 7TH ADMINISTRATION
     Route: 065
  5. METHOTREXATE [Concomitant]
     Route: 065
  6. FOLIC ACID [Concomitant]
     Route: 065
  7. MISOPROSTOL [Concomitant]
     Route: 065
  8. TEPRENONE [Concomitant]
     Route: 065
  9. MELOXICAM [Concomitant]
     Route: 065
  10. ALLOPURINOL [Concomitant]
     Route: 065
  11. PREDNISOLONE [Concomitant]
  12. AMLODIPINE BESYLATE [Concomitant]
     Dosage: DRUG REPORTED AS AMLODIPINE BESILATE
     Route: 065
  13. LOSARTAN POTASSIUM [Concomitant]
     Route: 065
  14. LANSOPRAZOLE [Concomitant]
     Route: 065
  15. ATORVASTATIN CALCIUM [Concomitant]
     Route: 065
  16. ZOPICLONE [Concomitant]
     Route: 065
  17. KETOPROFEN [Concomitant]
     Route: 065
  18. ROSUVASTATIN CALCIUM [Concomitant]
     Route: 065
  19. TRIAZOLAM [Concomitant]
     Route: 065
  20. CLARITHROMYCIN [Concomitant]
     Route: 065
  21. URSODEOXYCHOLIC ACID [Concomitant]
     Route: 065
  22. INFLIXIMAB [Concomitant]
     Route: 065
     Dates: start: 20110323
  23. OCRELIZUMAB [Suspect]
     Indication: RHEUMATOID ARTHRITIS
     Dosage: FORM: INFUSION; FORM AND FREQUENCY PER PROTOCOL; LAST DOSE PRIOR TO SAE: 19 AUGUST 2009; DAY 1
     Route: 042
     Dates: start: 20090218, end: 20090218
  24. OCRELIZUMAB [Suspect]
     Dosage: DAY 15, SECOND ADMINISTRATION
     Route: 042
     Dates: start: 20090304, end: 20090304
  25. OCRELIZUMAB [Suspect]
     Dosage: WEEK 24, THIRD ADMINISTRATION
     Route: 042
     Dates: start: 20090806, end: 20090806
  26. OCRELIZUMAB [Suspect]
     Dosage: WEEK 24, FOURTH ADMINISTRATION
     Route: 042
     Dates: start: 20090819, end: 20090819

REACTIONS (1)
  - Gastric cancer [Fatal]
